FAERS Safety Report 6082705-2 (Version None)
Quarter: 2009Q1

REPORT INFORMATION
  Report Type: 
  Country: None (occurrence: None)
  Receive Date: 20090202
  Receipt Date: 20070719
  Transmission Date: 20090719
  Serious: Yes (Hospitalization)
  Sender: FDA-Public Use
  Company Number: 264457

PATIENT
  Age: 36 Year
  Sex: Male
  Weight: 113.8 kg

DRUGS (6)
  1. NOVOLOG [Suspect]
     Indication: TYPE 1 DIABETES MELLITUS
     Dosage: 70 IU, QD + SLIDING SCALE, SUBCUTAN.-PUMP
     Route: 058
     Dates: start: 20070210, end: 20070612
  2. NOVOLOG [Suspect]
  3. SYNTHYROID (LEVOTHYROXINE SODIUM) [Concomitant]
  4. EZETIMIBE W/SIMVASTATIN (EZETIMIBE, SIMVASTATIN) [Concomitant]
  5. SAW PLAMETTO /00833501/ (SERENOA REPENS) [Concomitant]
  6. FLUPHENAZINE /00000602/ (FLUPHENAZINE HYDROCHLORIDE) [Concomitant]

REACTIONS (2)
  - DIABETIC KETOACIDOSIS [None]
  - DRUG INEFFECTIVE [None]
